FAERS Safety Report 22756123 (Version 3)
Quarter: 2023Q4

REPORT INFORMATION
  Report Type: Spontaneous
  Country: US (occurrence: US)
  Receive Date: 20230727
  Receipt Date: 20231004
  Transmission Date: 20240110
  Serious: No
  Sender: FDA-Public Use
  Company Number: US-SA-SAC20230724001213

PATIENT
  Age: 15 Year
  Sex: Male
  Weight: 72.109 kg

DRUGS (1)
  1. FABRAZYME [Suspect]
     Active Substance: AGALSIDASE BETA
     Indication: Fabry^s disease
     Dosage: 90 MG, QOW (STRENGTH 5 AND 35 MG AT DOSE 20 MG+70MG)
     Route: 042
     Dates: start: 202305

REACTIONS (1)
  - Weight fluctuation [Unknown]

NARRATIVE: CASE EVENT DATE: 20230707
